FAERS Safety Report 17653921 (Version 1)
Quarter: 2020Q2

REPORT INFORMATION
  Report Type: Spontaneous
  Country: FR (occurrence: FR)
  Receive Date: 20200410
  Receipt Date: 20200410
  Transmission Date: 20200713
  Serious: Yes (Other)
  Sender: FDA-Public Use
  Company Number: FR-TEVA-2020-FR-1221723

PATIENT
  Age: 72 Year
  Sex: Male
  Weight: 79 kg

DRUGS (16)
  1. PRIMPERAN 10 MG, COMPRIME SECABLE [Concomitant]
     Dosage: 3 DF
     Route: 048
  2. GLYCOPYRRONIUM [Concomitant]
     Active Substance: GLYCOPYRRONIUM
     Dosage: 1 DF
     Route: 055
  3. KESTIN [Concomitant]
     Active Substance: EBASTINE
     Route: 048
  4. PERMIXON 160 MG, GELULE [Concomitant]
     Active Substance: HERBALS\SAW PALMETTO
     Dosage: 2 DF
     Route: 048
  5. DERMOVAL, GEL [Concomitant]
     Route: 003
  6. PARACETAMOL [Concomitant]
     Active Substance: ACETAMINOPHEN
     Dosage: 3 GRAM
     Route: 048
  7. BINOCRIT 30 000 UI/0,75 ML, SOLUTION INJECTABLE EN SERINGUE PREREMPLIE [Concomitant]
     Active Substance: ERYTHROPOIETIN
     Dosage: 1 DF
     Route: 058
  8. RAMIPRIL. [Concomitant]
     Active Substance: RAMIPRIL
     Dosage: 10 MG
     Route: 048
  9. ZIEXTENZO 6 MG, SOLUTION INJECTABLE EN SERINGUE PREREMPLIE [Concomitant]
     Route: 058
     Dates: start: 20191201
  10. LERCAN 10 MG, COMPRIME PELLICULE SECABLE [Concomitant]
     Active Substance: LERCANIDIPINE HYDROCHLORIDE
     Dosage: 1 DF
     Route: 048
  11. LANSOPRAZOLE. [Concomitant]
     Active Substance: LANSOPRAZOLE
     Dosage: 30 MG
     Route: 048
  12. ONBREZ BREEZHALER 150 MICROGRAMMES, POUDRE POUR INHALATION EN G?LULE [Concomitant]
     Dosage: 1 DF
     Route: 055
  13. TOUJEO [Concomitant]
     Active Substance: INSULIN GLARGINE
     Dosage: 18 IU
     Route: 058
  14. ETOPOSIDE. [Suspect]
     Active Substance: ETOPOSIDE
     Indication: BRONCHIAL CARCINOMA
     Route: 042
     Dates: start: 201910
  15. CARBOPLATINE [Suspect]
     Active Substance: CARBOPLATIN
     Indication: BRONCHIAL CARCINOMA
     Route: 042
     Dates: start: 201910
  16. CRESTOR [Concomitant]
     Active Substance: ROSUVASTATIN CALCIUM
     Dosage: 1 DF
     Route: 048

REACTIONS (1)
  - Toxic skin eruption [Not Recovered/Not Resolved]

NARRATIVE: CASE EVENT DATE: 201912
